FAERS Safety Report 8921889 (Version 2)
Quarter: 2013Q1

REPORT INFORMATION
  Report Type: Spontaneous
  Country: CA (occurrence: CA)
  Receive Date: 20121121
  Receipt Date: 20130116
  Transmission Date: 20140127
  Serious: Yes (Hospitalization)
  Sender: FDA-Public Use
  Company Number: CA-B.I. PHARMACEUTICALS,INC./RIDGEFIELD-2012-CN-02246CN

PATIENT
  Age: 70 Year
  Sex: Male

DRUGS (9)
  1. PRADAX [Suspect]
     Indication: ANTICOAGULANT THERAPY
     Dosage: 150 MG
     Route: 048
  2. PRADAX [Suspect]
     Indication: ATRIAL FIBRILLATION
  3. DOMPERIDONE [Concomitant]
     Route: 065
  4. ATORVASTATIN [Concomitant]
     Route: 065
  5. LORAZEPAM [Concomitant]
     Route: 065
  6. METFORMIN [Concomitant]
     Route: 065
  7. DRONEDARONE [Concomitant]
     Dosage: ONE DOSE
     Route: 065
  8. DABIGATRAN [Concomitant]
     Route: 065
  9. TRAMACET [Concomitant]
     Route: 065

REACTIONS (11)
  - Drug-induced liver injury [Recovered/Resolved]
  - Jaundice [Recovered/Resolved]
  - Hepatic steatosis [Recovered/Resolved]
  - Alanine aminotransferase abnormal [Recovered/Resolved]
  - Aspartate aminotransferase abnormal [Recovered/Resolved]
  - Bilirubin conjugated abnormal [Recovered/Resolved]
  - Blood alkaline phosphatase abnormal [Recovered/Resolved]
  - Gamma-glutamyltransferase abnormal [Recovered/Resolved]
  - Blood glucose abnormal [Recovered/Resolved]
  - Haemoglobin abnormal [Recovered/Resolved]
  - Platelet count abnormal [Recovered/Resolved]
